FAERS Safety Report 17029093 (Version 2)
Quarter: 2019Q4

REPORT INFORMATION
  Report Type: Spontaneous
  Country: ES (occurrence: ES)
  Receive Date: 20191114
  Receipt Date: 20191119
  Transmission Date: 20200122
  Serious: Yes (Hospitalization)
  Sender: FDA-Public Use
  Company Number: ES-009507513-1910ESP012502

PATIENT
  Age: 57 Year
  Sex: Male
  Weight: 55 kg

DRUGS (17)
  1. PLATINUM [Suspect]
     Active Substance: PLATINUM
     Dosage: UNK
  2. PEMBROLIZUMAB. [Suspect]
     Active Substance: PEMBROLIZUMAB
     Indication: LUNG ADENOCARCINOMA STAGE IV
     Dosage: 200 MILLIGRAM, Q3W (FIRST CYCLE)
     Route: 042
     Dates: start: 20190925, end: 20190925
  3. PEMETREXED DISODIUM [Suspect]
     Active Substance: PEMETREXED DISODIUM
     Indication: LUNG ADENOCARCINOMA STAGE IV
     Dosage: UNK,
     Dates: start: 20190925
  4. PEMETREXED DISODIUM [Suspect]
     Active Substance: PEMETREXED DISODIUM
     Dosage: UNK
     Dates: start: 20191112
  5. ZOMETA [Suspect]
     Active Substance: ZOLEDRONIC ACID
     Dosage: UNK
     Dates: start: 20191112
  6. OMEPRAZOLE. [Concomitant]
     Active Substance: OMEPRAZOLE
     Indication: GASTRIC DISORDER
     Dosage: 20 MILLIGRAM,DAILY
     Route: 048
     Dates: start: 201909
  7. PEMBROLIZUMAB. [Suspect]
     Active Substance: PEMBROLIZUMAB
     Dosage: UNK
     Dates: start: 20191023
  8. PLATINUM [Suspect]
     Active Substance: PLATINUM
     Dosage: UNK
     Dates: start: 20191112
  9. LORAZEPAM. [Concomitant]
     Active Substance: LORAZEPAM
     Indication: INSOMNIA
     Dosage: 1 MILLIGRAM, BID
     Route: 048
     Dates: start: 201909
  10. PEMETREXED DISODIUM [Suspect]
     Active Substance: PEMETREXED DISODIUM
     Dosage: UNK
  11. ACFOL [Concomitant]
     Active Substance: FOLIC ACID
     Indication: PREMEDICATION
     Dosage: 5 MILLIGRAM/DAILY
     Route: 048
     Dates: start: 201909
  12. IDEOS [Concomitant]
     Active Substance: CALCIUM CARBONATE\CHOLECALCIFEROL
     Indication: PREMEDICATION
     Dosage: 500 MG/400 IU/ DAILY
     Route: 048
     Dates: start: 201909
  13. FORTECORTIN [Concomitant]
     Active Substance: DEXAMETHASONE
     Indication: PREMEDICATION
     Dosage: 8 MILLIGRAM, 3 DAYS EVERY 21 DAYS
     Route: 048
     Dates: start: 20190924
  14. PLATINUM [Suspect]
     Active Substance: PLATINUM
     Indication: LUNG ADENOCARCINOMA STAGE IV
     Dosage: UNK,
     Dates: start: 20190925
  15. ZOMETA [Suspect]
     Active Substance: ZOLEDRONIC ACID
     Indication: LUNG ADENOCARCINOMA STAGE IV
     Dosage: UNK
     Dates: start: 20190925
  16. ZOMETA [Suspect]
     Active Substance: ZOLEDRONIC ACID
     Dosage: UNK
  17. ACETAMINOPHEN. [Concomitant]
     Active Substance: ACETAMINOPHEN
     Indication: BACK PAIN
     Dosage: 1 GRAM,EVERY 12 HOURS
     Route: 048
     Dates: start: 201908

REACTIONS (4)
  - Immune-mediated adverse reaction [Recovering/Resolving]
  - Skin toxicity [Recovering/Resolving]
  - Platelet count decreased [Recovered/Resolved]
  - Inappropriate schedule of product administration [Unknown]

NARRATIVE: CASE EVENT DATE: 20191002
